FAERS Safety Report 5711795-9 (Version None)
Quarter: 2008Q2

REPORT INFORMATION
  Report Type: 
  Country: None (occurrence: None)
  Receive Date: 20080421
  Receipt Date: 20080409
  Transmission Date: 20081010
  Serious: Yes (Other)
  Sender: FDA-Public Use
  Company Number: US-PFIZER INC-2008028644

PATIENT
  Sex: Female
  Weight: 65.8 kg

DRUGS (12)
  1. CHANTIX [Suspect]
     Indication: SMOKING CESSATION THERAPY
     Dates: start: 20080323, end: 20080402
  2. METFORMIN HCL [Concomitant]
     Indication: DIABETES MELLITUS
  3. ALAVERT [Concomitant]
     Indication: HYPERSENSITIVITY
  4. SEROQUEL [Concomitant]
  5. AVANDIA [Concomitant]
  6. SIMVASTATIN [Concomitant]
     Indication: BLOOD CHOLESTEROL INCREASED
     Dosage: DAILY DOSE:20MG
  7. CLONAZEPAM [Concomitant]
  8. ISOSORBIDE DINITRATE [Concomitant]
     Indication: CARDIAC DISORDER
  9. ATENOLOL [Concomitant]
  10. SERTRALINE [Concomitant]
  11. RISPERDAL [Concomitant]
  12. DRUG, UNSPECIFIED [Concomitant]

REACTIONS (3)
  - BLOOD GLUCOSE INCREASED [None]
  - MENTAL DISORDER [None]
  - SUICIDAL IDEATION [None]
